FAERS Safety Report 6108331-4 (Version None)
Quarter: 2009Q1

REPORT INFORMATION
  Report Type: 
  Country: None (occurrence: None)
  Receive Date: 20090309
  Receipt Date: 20090304
  Transmission Date: 20090719
  Serious: No
  Sender: FDA-Public Use
  Company Number: US-B.I. PHARMACEUTICALS,INC./RIDGEFIELD-2009-BP-02658BP

PATIENT
  Sex: Male

DRUGS (5)
  1. SPIRIVA [Suspect]
     Indication: CHRONIC OBSTRUCTIVE PULMONARY DISEASE
     Dosage: 18MCG
     Route: 055
     Dates: end: 20090301
  2. ALBUTEROL [Concomitant]
     Indication: CHEMICAL POISONING
     Route: 055
     Dates: start: 20060101
  3. COUMADIN [Concomitant]
     Indication: HEART RATE IRREGULAR
     Dosage: 3.5MG
     Route: 048
     Dates: start: 20040101
  4. COUMADIN [Concomitant]
     Indication: CEREBROVASCULAR ACCIDENT PROPHYLAXIS
  5. CELEBREX [Concomitant]
     Indication: ARTHRITIS
     Route: 048
     Dates: start: 20000101

REACTIONS (1)
  - URINARY RETENTION [None]
